FAERS Safety Report 4362308-8 (Version None)
Quarter: 2004Q2

REPORT INFORMATION
  Report Type: 
  Country: None (occurrence: None)
  Receive Date: 20040517
  Receipt Date: 20040505
  Transmission Date: 20050107
  Serious: No
  Sender: FDA-Public Use
  Company Number: 04P-013-0260304-00

PATIENT
  Sex: 0

DRUGS (3)
  1. KALETRA [Suspect]
     Indication: HIV INFECTION
  2. VIREAD [Concomitant]
  3. DIDANOSINE [Concomitant]

REACTIONS (2)
  - DRUG INTERACTION [None]
  - RENAL FAILURE ACUTE [None]
